FAERS Safety Report 13951288 (Version 1)
Quarter: 2017Q3

REPORT INFORMATION
  Report Type: Spontaneous
  Country: US (occurrence: US)
  Receive Date: 20170908
  Receipt Date: 20170908
  Transmission Date: 20171128
  Serious: Yes (Other)
  Sender: FDA-Public Use
  Company Number: US-ROCHE-1148041

PATIENT
  Sex: Male

DRUGS (7)
  1. PREDNISONE. [Concomitant]
     Active Substance: PREDNISONE
  2. CYTOXAN [Concomitant]
     Active Substance: CYCLOPHOSPHAMIDE
  3. VINCRISTINE [Concomitant]
     Active Substance: VINCRISTINE
  4. LEUKERAN [Concomitant]
     Active Substance: CHLORAMBUCIL
  5. RITUXAN [Suspect]
     Active Substance: RITUXIMAB
     Indication: CHRONIC LYMPHOCYTIC LEUKAEMIA
     Route: 065
     Dates: start: 20000702
  6. FLUDARABINE [Concomitant]
     Active Substance: FLUDARABINE PHOSPHATE
  7. PROCRIT [Concomitant]
     Active Substance: ERYTHROPOIETIN

REACTIONS (3)
  - Weight decreased [Unknown]
  - Lymphoma [Unknown]
  - Bradycardia [Unknown]
